FAERS Safety Report 15266419 (Version 2)
Quarter: 2018Q3

REPORT INFORMATION
  Report Type: Spontaneous
  Country: CH (occurrence: CH)
  Receive Date: 20180810
  Receipt Date: 20180817
  Transmission Date: 20181010
  Serious: Yes (Hospitalization, Other)
  Sender: FDA-Public Use
  Company Number: CH-GILEAD-2018-0354964

PATIENT
  Age: 26 Year
  Sex: Male
  Weight: 57 kg

DRUGS (1)
  1. EPCLUSA [Suspect]
     Active Substance: SOFOSBUVIR\VELPATASVIR
     Indication: CHRONIC HEPATITIS C
     Dosage: 1 DF, QD
     Route: 065
     Dates: start: 20180719

REACTIONS (3)
  - Pain [Unknown]
  - Drug abuse [Unknown]
  - Thrombosis [Unknown]

NARRATIVE: CASE EVENT DATE: 20180802
